FAERS Safety Report 18257284 (Version 1)
Quarter: 2020Q3

REPORT INFORMATION
  Report Type: Spontaneous
  Country: FR (occurrence: FR)
  Receive Date: 20200911
  Receipt Date: 20200911
  Transmission Date: 20201103
  Serious: Yes (Death)
  Sender: FDA-Public Use
  Company Number: FR-009507513-2009FRA001606

PATIENT
  Age: 61 Year
  Sex: Female
  Weight: 110 kg

DRUGS (13)
  1. DEXAMETHASONE. [Suspect]
     Active Substance: DEXAMETHASONE
     Indication: TUMOUR EXCISION
     Dosage: 8 MG, ONCE
     Route: 040
     Dates: start: 20200403, end: 20200403
  2. BRIDION [Suspect]
     Active Substance: SUGAMMADEX
     Indication: NEUROMUSCULAR BLOCKADE REVERSAL
     Dosage: 200 MILLIGRAM, ONCE
     Route: 040
     Dates: start: 20200403, end: 20200403
  3. NOREPINEPHRINE. [Suspect]
     Active Substance: NOREPINEPHRINE
     Indication: TUMOUR EXCISION
     Dosage: UNKNOWN
     Route: 041
     Dates: start: 20200403, end: 20200403
  4. EPHEDRINE. [Suspect]
     Active Substance: EPHEDRINE
     Indication: TUMOUR EXCISION
     Dosage: 18 MICROGRAM, ONCE
     Route: 040
     Dates: start: 20200403, end: 20200403
  5. ACUPAN [Suspect]
     Active Substance: NEFOPAM HYDROCHLORIDE
     Indication: PAIN
     Dosage: 20MG, QD
     Route: 041
     Dates: start: 20200403, end: 20200403
  6. FLAGYL (METRONIDAZOLE BENZOATE) [Suspect]
     Active Substance: METRONIDAZOLE BENZOATE
     Indication: PROPHYLAXIS
     Dosage: UNKNOWN
     Route: 041
     Dates: start: 20200403, end: 20200403
  7. NEO?SYNEPHRINE [Suspect]
     Active Substance: PHENYLEPHRINE HYDROCHLORIDE
     Indication: TUMOUR EXCISION
     Dosage: 1400 MICROGRAM, ONCE
     Route: 040
     Dates: start: 20200403, end: 20200403
  8. ROCEPHIN [Suspect]
     Active Substance: CEFTRIAXONE SODIUM
     Indication: PROPHYLAXIS
     Dosage: UNKNOWN
     Route: 041
     Dates: start: 20200403, end: 20200403
  9. PERFALGAN [Suspect]
     Active Substance: ACETAMINOPHEN
     Indication: PAIN
     Dosage: UNKNOWN
     Route: 041
     Dates: start: 20200403, end: 20200403
  10. DIPRIVAN [Suspect]
     Active Substance: PROPOFOL
     Indication: TUMOUR EXCISION
     Dosage: 340 MG, ONCE
     Route: 040
     Dates: start: 20200403, end: 20200403
  11. KETAMINE [Suspect]
     Active Substance: KETAMINE
     Indication: TUMOUR EXCISION
     Dosage: 45 MG, ONCE
     Route: 040
     Dates: start: 20200403, end: 20200403
  12. SUFENTA [Suspect]
     Active Substance: SUFENTANIL CITRATE
     Indication: TUMOUR EXCISION
     Dosage: 155 MICROGRAM, ONCE
     Route: 040
     Dates: start: 20200403, end: 20200403
  13. XYLOCAINE [Suspect]
     Active Substance: LIDOCAINE HYDROCHLORIDE
     Indication: TUMOUR EXCISION
     Dosage: 65 MILLIGARM, ONCE
     Route: 040
     Dates: start: 20200403, end: 20200403

REACTIONS (1)
  - Cardio-respiratory arrest [Fatal]

NARRATIVE: CASE EVENT DATE: 20200403
